FAERS Safety Report 5150750-7 (Version None)
Quarter: 2006Q4

REPORT INFORMATION
  Report Type: 
  Country: None (occurrence: None)
  Receive Date: 20061108
  Receipt Date: 20061026
  Transmission Date: 20070319
  Serious: Yes (Hospitalization)
  Sender: FDA-Public Use
  Company Number: 2006128121

PATIENT
  Age: 62 Year
  Sex: Female

DRUGS (4)
  1. SUTENT [Suspect]
     Indication: GASTROINTESTINAL STROMAL TUMOUR
     Dosage: 37.5 MG (37.5 MG, DAILY - INTERVAL: CYCLIC), ORAL
     Route: 048
     Dates: start: 20060501
  2. ATENOLOL [Concomitant]
  3. BENDROFLUAZIDE (BNDROFLUMETHIAZIDE) [Concomitant]
  4. OMEPRAZOLE [Concomitant]

REACTIONS (1)
  - PULMONARY EMBOLISM [None]
